FAERS Safety Report 12545149 (Version 2)
Quarter: 2016Q3

REPORT INFORMATION
  Report Type: Spontaneous
  Country: JP (occurrence: JP)
  Receive Date: 20160711
  Receipt Date: 20160722
  Transmission Date: 20161109
  Serious: Yes (Other)
  Sender: FDA-Public Use
  Company Number: JP-BAYER-2016-130606

PATIENT
  Age: 39 Year
  Sex: Female

DRUGS (1)
  1. BAYASPIRIN [Suspect]
     Active Substance: ASPIRIN
     Dosage: UNK
     Route: 048
     Dates: end: 2015

REACTIONS (4)
  - Anaphylactoid syndrome of pregnancy [Recovered/Resolved]
  - Maternal exposure during pregnancy [Recovered/Resolved]
  - Disseminated intravascular coagulation [Recovered/Resolved]
  - Haemorrhage [Recovered/Resolved]

NARRATIVE: CASE EVENT DATE: 20151123
